FAERS Safety Report 19019882 (Version 4)
Quarter: 2021Q3

REPORT INFORMATION
  Report Type: Spontaneous
  Country: US (occurrence: US)
  Receive Date: 20210317
  Receipt Date: 20210820
  Transmission Date: 20211014
  Serious: Yes (Hospitalization, Other)
  Sender: FDA-Public Use
  Company Number: US-UCBSA-2021007451

PATIENT
  Age: 30 Year
  Sex: Female

DRUGS (3)
  1. VIMPAT [Suspect]
     Active Substance: LACOSAMIDE
     Indication: EPILEPSY
     Dosage: UNK
     Dates: start: 2020
  2. NAYZILAM [Suspect]
     Active Substance: MIDAZOLAM
     Indication: EPILEPSY
     Dosage: UNK
  3. KEPPRA XR [Suspect]
     Active Substance: LEVETIRACETAM
     Indication: EPILEPSY
     Dosage: 2000MG MORNING AND 3000MG IN THE EVENING, 2X/DAY (BID)
     Route: 048
     Dates: start: 200901

REACTIONS (9)
  - Gestational diabetes [Recovering/Resolving]
  - Stillbirth [Unknown]
  - Contusion [Unknown]
  - Maternal exposure during pregnancy [Unknown]
  - Twin pregnancy [Unknown]
  - Overdose [Unknown]
  - Product use issue [Unknown]
  - Seizure cluster [Recovering/Resolving]
  - Seizure [Unknown]

NARRATIVE: CASE EVENT DATE: 200901
